FAERS Safety Report 21232238 (Version 1)
Quarter: 2022Q3

REPORT INFORMATION
  Report Type: Spontaneous
  Country: US (occurrence: None)
  Receive Date: 20220818
  Receipt Date: 20220818
  Transmission Date: 20221026
  Serious: No
  Sender: FDA-Public Use
  Company Number: None

PATIENT
  Age: 58 Year
  Sex: Female
  Weight: 76.5 kg

DRUGS (4)
  1. IVERMECTIN [Suspect]
     Active Substance: IVERMECTIN
     Indication: Rosacea
     Dosage: OTHER QUANTITY : 1 PEA SIZED AMOUNT;?FREQUENCY : DAILY;?
     Route: 061
     Dates: start: 20220811, end: 20220818
  2. LEVOTHYROXINE [Concomitant]
     Active Substance: LEVOTHYROXINE
  3. SINGULAIR [Concomitant]
     Active Substance: MONTELUKAST SODIUM
  4. MOBIC [Concomitant]
     Active Substance: MELOXICAM

REACTIONS (4)
  - Manufacturing issue [None]
  - Hyperhidrosis [None]
  - Eye irritation [None]
  - Accidental exposure to product [None]

NARRATIVE: CASE EVENT DATE: 20220818
